FAERS Safety Report 23409794 (Version 4)
Quarter: 2024Q1

REPORT INFORMATION
  Report Type: Spontaneous
  Country: GB (occurrence: GB)
  Receive Date: 20240117
  Receipt Date: 20240206
  Transmission Date: 20240410
  Serious: Yes (Death, Hospitalization, Other)
  Sender: FDA-Public Use
  Company Number: GB-CLINIGEN-GB-CLI-2023-043384

PATIENT
  Age: 55 Year
  Sex: Male
  Weight: 72.8 kg

DRUGS (76)
  1. CYCLOPHOSPHAMIDE [Suspect]
     Active Substance: CYCLOPHOSPHAMIDE
     Indication: Metastatic malignant melanoma
     Dosage: 550 MG, QD
     Route: 050
     Dates: start: 20230816, end: 20230818
  2. ALDESLEUKIN [Suspect]
     Active Substance: ALDESLEUKIN
     Indication: Metastatic malignant melanoma
     Dosage: 1 DOSAGE FORM, QD, 1.86 MILLION INTERNATIONAL UNIT
     Route: 050
     Dates: start: 20230822, end: 20230829
  3. ALDESLEUKIN [Suspect]
     Active Substance: ALDESLEUKIN
     Dosage: 1.9 MILLION INTERNATIONAL UNIT, QD
     Route: 050
     Dates: start: 20230825, end: 20230827
  4. ALDESLEUKIN [Suspect]
     Active Substance: ALDESLEUKIN
     Dosage: 1.9 MILLION INTERNATIONAL UNIT, QD
     Route: 050
     Dates: start: 20230829, end: 20230829
  5. ALDESLEUKIN [Suspect]
     Active Substance: ALDESLEUKIN
     Dosage: 1.86 MILLION INTERNATIONAL UNIT, QD
     Route: 050
     Dates: start: 20230822, end: 20230824
  6. ATENOLOL [Suspect]
     Active Substance: ATENOLOL
     Indication: Metastatic malignant melanoma
     Dosage: UNK
     Route: 050
     Dates: start: 20230822, end: 20230822
  7. FLUDARABINE [Suspect]
     Active Substance: FLUDARABINE PHOSPHATE
     Indication: Metastatic malignant melanoma
     Dosage: 55 MG, QD
     Route: 050
     Dates: start: 20230816, end: 20230818
  8. NIVOLUMAB [Suspect]
     Active Substance: NIVOLUMAB
     Indication: Metastatic malignant melanoma
     Dosage: 240 MG
     Route: 050
     Dates: start: 20230815, end: 20230815
  9. ATENOLOL [Suspect]
     Active Substance: ATENOLOL
     Indication: Metastatic malignant melanoma
     Dosage: UNK
     Route: 050
     Dates: start: 20230822
  10. ACYCLOVIR [Concomitant]
     Active Substance: ACYCLOVIR
     Indication: Prophylaxis
     Dosage: 800 MG (400 MG, BID)
     Route: 050
     Dates: start: 20230816, end: 20230911
  11. CALCIUM CARBONATE\CHOLECALCIFEROL [Concomitant]
     Active Substance: CALCIUM CARBONATE\CHOLECALCIFEROL
     Indication: Hypocalcaemia
     Dosage: 3000/800 UNITS
     Route: 065
     Dates: start: 20230822, end: 20230823
  12. AMILORIDE [Concomitant]
     Active Substance: AMILORIDE
     Indication: Hypokalaemia
     Dosage: 10 MG, QD
     Route: 050
     Dates: start: 20230908, end: 20230924
  13. AMILORIDE [Concomitant]
     Active Substance: AMILORIDE
     Dosage: 5 GM
     Route: 050
     Dates: start: 20230831, end: 20230906
  14. AMLODIPINE [Concomitant]
     Active Substance: AMLODIPINE BESYLATE
     Indication: Hypertension
     Dosage: 5 MG, QD
     Route: 050
     Dates: start: 20230902, end: 20230907
  15. AMLODIPINE [Concomitant]
     Active Substance: AMLODIPINE BESYLATE
     Dosage: 10 MG, QD
     Route: 050
     Dates: start: 20230907, end: 20230928
  16. AZITHROMYCIN [Concomitant]
     Active Substance: AZITHROMYCIN
     Indication: Prophylaxis
     Dosage: 1500 MG (500 MG, TIW)
     Route: 050
     Dates: start: 20230830, end: 20230927
  17. CHLORPHENIRAMINE MALEATE [Concomitant]
     Active Substance: CHLORPHENIRAMINE MALEATE
     Indication: Premedication
     Dosage: 10 MG
     Route: 050
     Dates: start: 20230822, end: 20230822
  18. CHOLECALCIFEROL [Concomitant]
     Active Substance: CHOLECALCIFEROL
     Indication: Supplementation therapy
     Dosage: UNK (800 IU)
     Route: 050
     Dates: start: 20200101, end: 20230923
  19. CHOLECALCIFEROL [Concomitant]
     Active Substance: CHOLECALCIFEROL
     Dosage: UNK UNK, QD (800 IU)
     Route: 050
     Dates: start: 20200101
  20. CIPROFLOXACIN [Concomitant]
     Active Substance: CIPROFLOXACIN
     Indication: Infection
     Dosage: 500 MG BID
     Route: 050
     Dates: start: 20230831, end: 20230905
  21. CLARITHROMYCIN [Concomitant]
     Active Substance: CLARITHROMYCIN
     Indication: Prophylaxis
     Dosage: 1500 MG (500 MG, TIW)
     Route: 050
     Dates: start: 20230830
  22. AMOXICILLIN\CLAVULANATE POTASSIUM [Concomitant]
     Active Substance: AMOXICILLIN\CLAVULANATE POTASSIUM
     Indication: C-reactive protein increased
     Dosage: 625 MG 2 X 625 MG THEN SWITCHED TO IV
     Route: 050
     Dates: start: 20230817, end: 20230818
  23. AMOXICILLIN\CLAVULANATE POTASSIUM [Concomitant]
     Active Substance: AMOXICILLIN\CLAVULANATE POTASSIUM
     Dosage: 3600 MG (1200 MG, TIW)
     Route: 050
     Dates: start: 20230818, end: 20230823
  24. COTRIMOXAZOLE [Concomitant]
     Active Substance: SULFAMETHOXAZOLE\TRIMETHOPRIM
     Indication: Atypical pneumonia
     Dosage: 960 MG (480 MG, BID)
     Route: 065
     Dates: start: 20230816, end: 20230817
  25. COTRIMOXAZOLE [Concomitant]
     Active Substance: SULFAMETHOXAZOLE\TRIMETHOPRIM
     Dosage: UNK (WEEKLY)
     Route: 065
     Dates: start: 20230817, end: 20230829
  26. DOXAZOSIN [Concomitant]
     Active Substance: DOXAZOSIN MESYLATE
     Indication: Hypertension
     Dosage: 6 MG (2 MG, TID)
     Route: 050
     Dates: start: 20230907, end: 20230920
  27. ENOXAPARIN [Concomitant]
     Active Substance: ENOXAPARIN
     Indication: Deep vein thrombosis
     Dosage: 100 MG, QD
     Route: 050
     Dates: start: 20230831, end: 20230831
  28. ENOXAPARIN [Concomitant]
     Active Substance: ENOXAPARIN
     Dosage: 100 MG, QD
     Route: 050
     Dates: start: 20230904, end: 20230909
  29. ENOXAPARIN [Concomitant]
     Active Substance: ENOXAPARIN
     Dosage: 40 MG, QD
     Route: 050
     Dates: start: 20230902, end: 20230902
  30. ENOXAPARIN [Concomitant]
     Active Substance: ENOXAPARIN
     Dosage: UNK (60, 80 MG)
     Route: 050
     Dates: start: 20230822, end: 20230830
  31. ENOXAPARIN [Concomitant]
     Active Substance: ENOXAPARIN
     Dosage: 100 MG
     Route: 050
     Dates: start: 20230816, end: 20230821
  32. FAMOTIDINE [Concomitant]
     Active Substance: FAMOTIDINE
     Indication: Gastrooesophageal reflux disease
     Dosage: 20 MG, QD
     Route: 050
     Dates: start: 20230818, end: 20230910
  33. FLUCONAZOLE [Concomitant]
     Active Substance: FLUCONAZOLE
     Indication: Prophylaxis
     Dosage: 100 MG
     Route: 050
     Dates: start: 20230816, end: 20230908
  34. FUROSEMIDE [Concomitant]
     Active Substance: FUROSEMIDE
     Indication: Pulmonary oedema
     Dosage: 40 MG
     Route: 050
     Dates: start: 20230827, end: 20230827
  35. FUROSEMIDE [Concomitant]
     Active Substance: FUROSEMIDE
     Dosage: 40 MG
     Route: 050
     Dates: start: 20230904, end: 20230906
  36. FUROSEMIDE [Concomitant]
     Active Substance: FUROSEMIDE
     Dosage: 20 MG
     Route: 050
     Dates: start: 20230820, end: 20230820
  37. FUROSEMIDE [Concomitant]
     Active Substance: FUROSEMIDE
     Dosage: 40 MG
     Route: 050
     Dates: start: 20230829, end: 20230901
  38. FUROSEMIDE [Concomitant]
     Active Substance: FUROSEMIDE
     Dosage: 400 MG
     Route: 050
     Dates: start: 20230817, end: 20230817
  39. HYDROCORTISONE [Concomitant]
     Active Substance: HYDROCORTISONE
     Indication: Adrenal insufficiency
     Dosage: 20/10/2010 MG
     Route: 050
     Dates: start: 20230601, end: 20230911
  40. HYDROCORTISONE [Concomitant]
     Active Substance: HYDROCORTISONE
     Dosage: 10/05/2005 MG;
     Route: 050
  41. HYDROCORTISONE [Concomitant]
     Active Substance: HYDROCORTISONE
     Dosage: 20,10,10MG (20MG OM,10MG LUNCH AND EVENING); ;
     Route: 050
     Dates: start: 20230601
  42. POTASSIUM CHLORIDE [Concomitant]
     Active Substance: POTASSIUM CHLORIDE
     Indication: Product used for unknown indication
     Dosage: 6 GM
     Route: 050
     Dates: start: 20230830, end: 20230830
  43. POTASSIUM CHLORIDE [Concomitant]
     Active Substance: POTASSIUM CHLORIDE
     Indication: Hypokalaemia
     Dosage: 600 MG, BID
     Route: 050
     Dates: start: 20230908, end: 20230912
  44. POLYETHYLENE GLYCOL 3350\POTASSIUM CHLORIDE\SODIUM BICARBONATE\SODIUM [Concomitant]
     Active Substance: POLYETHYLENE GLYCOL 3350\POTASSIUM CHLORIDE\SODIUM BICARBONATE\SODIUM CHLORIDE
     Indication: Constipation
     Dosage: 1 DOSAGE FORM (1 SACHET)
     Route: 050
     Dates: start: 20230118
  45. LEVETIRACETAM [Concomitant]
     Active Substance: LEVETIRACETAM
     Indication: Seizure prophylaxis
     Dosage: 1000 MG, BID
     Route: 050
     Dates: start: 20230906, end: 20230921
  46. LEVETIRACETAM [Concomitant]
     Active Substance: LEVETIRACETAM
     Dosage: 500 MG, BID
     Route: 050
     Dates: start: 20230824, end: 20230906
  47. LEVOTHYROXINE [Concomitant]
     Active Substance: LEVOTHYROXINE\LEVOTHYROXINE SODIUM
     Indication: Hyperthyroidism
     Dosage: 125 MG, QD
     Route: 050
     Dates: start: 20200101, end: 20230928
  48. METOCLOPRAMIDE [Concomitant]
     Active Substance: METOCLOPRAMIDE
     Indication: Nausea
     Dosage: 10 MG, TID
     Route: 050
     Dates: start: 20230701, end: 20230915
  49. IRON ISOMALTOSIDE 1000 [Concomitant]
     Active Substance: IRON ISOMALTOSIDE 1000
     Indication: Anaemia
     Dosage: 1000 MG
     Route: 050
     Dates: start: 20230531, end: 20230831
  50. MORPHINE [Concomitant]
     Active Substance: MORPHINE
     Indication: Pain
     Dosage: 5 MG, BID
     Route: 050
     Dates: start: 20220303, end: 20230928
  51. MORPHINE SULFATE [Concomitant]
     Active Substance: MORPHINE SULFATE
     Indication: Pain
     Dosage: 5 MG, PRN
     Route: 050
     Dates: start: 20220303, end: 20231005
  52. MOVICOL [Concomitant]
     Active Substance: POLYETHYLENE GLYCOL 3350\POTASSIUM CHLORIDE\SODIUM BICARBONATE\SODIUM CHLORIDE
     Indication: Constipation
     Dosage: 1 DOSAGE FORM (1 SACHET)
     Route: 050
     Dates: start: 20230814, end: 20231001
  53. NYSTATIN [Concomitant]
     Active Substance: NYSTATIN
     Indication: Oral candidiasis
     Dosage: 1000,000 UNITS
     Route: 050
     Dates: start: 20230823, end: 20230830
  54. ONDANSETRON [Concomitant]
     Active Substance: ONDANSETRON
     Indication: Illness
     Dosage: 16 MG, QD
     Route: 065
     Dates: start: 20230816, end: 20230901
  55. ACETAMINOPHEN [Concomitant]
     Active Substance: ACETAMINOPHEN
     Indication: Analgesic therapy
     Dosage: 4 GM (1 GM,4 IN 1 D)
     Route: 050
     Dates: start: 20220303
  56. SODIUM PHOSPHATE, MONOBASIC, ANHYDROUS [Concomitant]
     Active Substance: SODIUM PHOSPHATE, MONOBASIC, ANHYDROUS
     Indication: Blood phosphorus decreased
     Dosage: 32.2 MMOL, TID
     Route: 050
     Dates: start: 20230823, end: 20230824
  57. PIPERACILLIN AND TAZOBACTAM [Concomitant]
     Active Substance: PIPERACILLIN SODIUM\TAZOBACTAM SODIUM
     Indication: Lower respiratory tract infection
     Dosage: 18 MG (4MG 4 TIMES A DAY)
     Route: 050
     Dates: start: 20230824, end: 20230831
  58. PLATELETS [Concomitant]
     Active Substance: HUMAN PLATELET, ALLOGENIC
     Indication: Platelet count decreased
     Dosage: 1 DOSAGE FORM, ONCE/SINGLE, 1 POOL ONCE
     Route: 050
     Dates: start: 20230907, end: 20230907
  59. PLATELETS [Concomitant]
     Active Substance: HUMAN PLATELET, ALLOGENIC
     Dosage: 1 DOSAGE FORM, ONCE/SINGLE, 1 POOL ONCE
     Route: 050
     Dates: start: 20230908, end: 20230908
  60. PLATELETS [Concomitant]
     Active Substance: HUMAN PLATELET, ALLOGENIC
     Dosage: 1 DOSAGE FORM, ONCE/SINGLE, 1 POOL ONCE
     Route: 050
     Dates: start: 20230830, end: 20230830
  61. PLATELETS [Concomitant]
     Active Substance: HUMAN PLATELET, ALLOGENIC
     Dosage: 1 DOSAGE FORM, ONCE/SINGLE, 1 POOL ONCE
     Route: 050
     Dates: start: 20230909, end: 20230909
  62. PLATELETS [Concomitant]
     Active Substance: HUMAN PLATELET, ALLOGENIC
     Dosage: 1 DOSAGE FORM, ONCE/SINGLE, 1 POOL ONCE
     Route: 050
     Dates: start: 20230831, end: 20230831
  63. PLATELETS [Concomitant]
     Active Substance: HUMAN PLATELET, ALLOGENIC
     Dosage: 1 DOSAGE FORM, ONCE/SINGLE, 1 POOL ONCE
     Route: 050
     Dates: start: 20230906, end: 20230906
  64. PLATELETS [Concomitant]
     Active Substance: HUMAN PLATELET, ALLOGENIC
     Dosage: 1 DOSAGE FORM, ONCE/SINGLE, 1 POOL ONCE
     Route: 050
     Dates: start: 20230901, end: 20230901
  65. PLATELETS [Concomitant]
     Active Substance: HUMAN PLATELET, ALLOGENIC
     Dosage: 1 DOSAGE FORM, ONCE/SINGLE, 1 POOL ONCE
     Route: 050
     Dates: start: 20230829, end: 20230829
  66. HUMAN RED BLOOD CELL [Concomitant]
     Active Substance: HUMAN RED BLOOD CELL
     Indication: Fatigue
     Dosage: 1 UNIT ONCE
     Route: 050
     Dates: start: 20230816, end: 20230816
  67. HUMAN RED BLOOD CELL [Concomitant]
     Active Substance: HUMAN RED BLOOD CELL
     Dosage: 1 UNIT ONCE
     Route: 050
     Dates: start: 20230814, end: 20230814
  68. HUMAN RED BLOOD CELL [Concomitant]
     Active Substance: HUMAN RED BLOOD CELL
     Dosage: 2 UNIT ONCE
     Route: 050
     Dates: start: 20230821, end: 20230821
  69. POTASSIUM BICARBONATE\POTASSIUM CHLORIDE [Concomitant]
     Active Substance: POTASSIUM BICARBONATE\POTASSIUM CHLORIDE
     Indication: Hypokalaemia
     Dosage: 72 MMOL (24 MILLIMOLE, TID)
     Route: 050
     Dates: start: 20230829, end: 20230901
  70. POTASSIUM BICARBONATE\POTASSIUM CHLORIDE [Concomitant]
     Active Substance: POTASSIUM BICARBONATE\POTASSIUM CHLORIDE
     Dosage: 72 MMOL (24 MILLIMOLE, TID)
     Route: 050
     Dates: start: 20230816, end: 20230820
  71. POTASSIUM BICARBONATE\POTASSIUM CHLORIDE [Concomitant]
     Active Substance: POTASSIUM BICARBONATE\POTASSIUM CHLORIDE
     Dosage: 72 MMOL (24 MILLIMOLE, TID)
     Route: 050
     Dates: start: 20230822, end: 20230825
  72. TAUROLIDINE [Concomitant]
     Active Substance: TAUROLIDINE
     Indication: Prophylaxis
     Dosage: 500 INTERNATIONAL UNIT.
     Route: 050
     Dates: start: 20230822
  73. MORPHINE SULFATE [Concomitant]
     Active Substance: MORPHINE SULFATE
     Indication: Pain
     Dosage: 120 MG (60 MG, BID)
     Route: 050
     Dates: start: 20230411, end: 20230814
  74. MORPHINE SULFATE [Concomitant]
     Active Substance: MORPHINE SULFATE
     Dosage: 140 MG (70 MG, BID)
     Route: 050
     Dates: start: 20230814, end: 20230914
  75. SODIUM PHOSPHATE, MONOBASIC [Concomitant]
     Active Substance: SODIUM PHOSPHATE, MONOBASIC
     Indication: Blood phosphorus decreased
     Dosage: 32.2 MMOL, TID
     Route: 050
     Dates: start: 20230823, end: 20230824
  76. SODIUM PHOSPHATE [Concomitant]
     Active Substance: SODIUM PHOSPHATE
     Indication: Blood phosphorus decreased
     Dosage: 32.2 MMOL, TID
     Route: 050
     Dates: start: 20230823

REACTIONS (5)
  - Pneumonia aspiration [Fatal]
  - Cerebrovascular accident [Fatal]
  - Immune effector cell-associated neurotoxicity syndrome [Recovering/Resolving]
  - Cytokine release syndrome [Unknown]
  - Hypoxia [Unknown]

NARRATIVE: CASE EVENT DATE: 20230824
